FAERS Safety Report 20867829 (Version 3)
Quarter: 2022Q4

REPORT INFORMATION
  Report Type: Spontaneous
  Country: US (occurrence: US)
  Receive Date: 20220524
  Receipt Date: 20221111
  Transmission Date: 20230112
  Serious: No
  Sender: FDA-Public Use
  Company Number: US-PFIZER INC-202200739250

PATIENT
  Age: 40 Year
  Sex: Male

DRUGS (2)
  1. INLYTA [Suspect]
     Active Substance: AXITINIB
     Dosage: 5 MG
  2. INLYTA [Suspect]
     Active Substance: AXITINIB
     Dosage: DECREASED DOSE TO 5MG IN THE MORNING AND 6MG IN THE EVENING

REACTIONS (5)
  - Blister [Unknown]
  - Arthralgia [Unknown]
  - Burning sensation [Unknown]
  - Fatigue [Unknown]
  - Skin disorder [Unknown]
